FAERS Safety Report 8732396 (Version 5)
Quarter: 2014Q1

REPORT INFORMATION
  Report Type: Report from Study
  Country: SE (occurrence: SE)
  Receive Date: 20120820
  Receipt Date: 20140304
  Transmission Date: 20141002
  Serious: Yes (Hospitalization)
  Sender: FDA-Public Use
  Company Number: SE-ROCHE-1097852

PATIENT
  Age: 12 Year
  Sex: Male
  Weight: 50 kg

DRUGS (29)
  1. BEVACIZUMAB [Suspect]
     Indication: BRAIN NEOPLASM MALIGNANT
     Dosage: DATE OF LAST DOSE PRIOR TO SAE: 23/JUL/2012, TOTAL DOSE:510 MG
     Route: 042
     Dates: start: 20120625
  2. BEVACIZUMAB [Suspect]
     Dosage: TOTAL DOSE:510 MG
     Route: 042
     Dates: start: 20120709
  3. BEVACIZUMAB [Suspect]
     Route: 042
     Dates: start: 20120723
  4. TEMOZOLOMIDE [Suspect]
     Indication: BRAIN NEOPLASM MALIGNANT
     Route: 065
     Dates: start: 20120625, end: 20120731
  5. TEMOZOLOMIDE [Suspect]
     Dosage: DOSE MODIFIED
     Route: 065
  6. OMEPRAZOLE [Concomitant]
     Route: 065
  7. BACTRIM FORTE [Concomitant]
     Route: 065
     Dates: start: 20120630
  8. ALVEDON [Concomitant]
     Route: 065
     Dates: start: 2012
  9. CONCERTA [Concomitant]
     Route: 065
     Dates: start: 201106, end: 20120502
  10. CONCERTA [Concomitant]
     Route: 065
     Dates: start: 201206
  11. BETAPRED [Concomitant]
     Route: 048
     Dates: start: 2012, end: 2012
  12. BETAPRED [Concomitant]
     Route: 048
     Dates: start: 20120703, end: 20120709
  13. BETAPRED [Concomitant]
     Dosage: SINGLE DOSE
     Route: 042
     Dates: start: 20120711
  14. BETAPRED [Concomitant]
     Route: 042
     Dates: start: 20120711, end: 20120712
  15. BETAPRED [Concomitant]
     Route: 048
     Dates: start: 20120712, end: 20120713
  16. BETAPRED [Concomitant]
     Route: 048
     Dates: start: 20120712, end: 20120713
  17. BETAPRED [Concomitant]
     Route: 048
     Dates: start: 20120714, end: 20120715
  18. BETAPRED [Concomitant]
     Route: 048
     Dates: start: 20120716, end: 20120716
  19. BETAPRED [Concomitant]
     Route: 048
     Dates: start: 20120716, end: 20120720
  20. BETAPRED [Concomitant]
     Route: 048
     Dates: start: 20120717, end: 20120718
  21. BETAPRED [Concomitant]
     Dosage: SINGLE DOSE
     Route: 042
     Dates: start: 20120723, end: 20120723
  22. BETAPRED [Concomitant]
     Dosage: SINGLE DOSE
     Route: 048
     Dates: start: 20120729, end: 20120729
  23. BETAPRED [Concomitant]
     Route: 048
     Dates: start: 20120730, end: 20120730
  24. BETAPRED [Concomitant]
     Route: 048
     Dates: start: 20120731, end: 20120801
  25. CEFOTAXIM [Concomitant]
     Route: 065
     Dates: start: 20120723, end: 20120724
  26. CEFUROXIM [Concomitant]
     Route: 065
     Dates: start: 20120619, end: 20120619
  27. ZOFRAN [Concomitant]
     Route: 065
     Dates: start: 20120625
  28. HEPARIN [Concomitant]
     Dosage: 100IE/ML
     Route: 065
     Dates: start: 20120712
  29. KYTRIL [Concomitant]
     Route: 065
     Dates: start: 20120705, end: 20120802

REACTIONS (1)
  - Somnolence [Recovered/Resolved with Sequelae]
